FAERS Safety Report 5356780-4 (Version None)
Quarter: 2007Q2

REPORT INFORMATION
  Report Type: 
  Country: None (occurrence: None)
  Receive Date: 20070530
  Receipt Date: 20061108
  Transmission Date: 20071010
  Serious: Yes (Other)
  Sender: FDA-Public Use
  Company Number: US200608004561

PATIENT
  Sex: Female
  Weight: 113.4 kg

DRUGS (1)
  1. ZYPREXA [Suspect]
     Dates: start: 19970101, end: 20020101

REACTIONS (6)
  - BLOOD CHOLESTEROL [None]
  - CHOLELITHIASIS [None]
  - DIABETES MELLITUS [None]
  - METABOLIC DISORDER [None]
  - OBESITY [None]
  - WEIGHT INCREASED [None]
